FAERS Safety Report 13617809 (Version 1)
Quarter: 2017Q2

REPORT INFORMATION
  Report Type: Spontaneous
  Country: US (occurrence: US)
  Receive Date: 20170606
  Receipt Date: 20170606
  Transmission Date: 20170830
  Serious: Yes (Hospitalization, Other)
  Sender: FDA-Public Use
  Company Number: US-SMITH AND NEPHEW, INC-2017SMT00397

PATIENT
  Age: 66 Year
  Sex: Male
  Weight: 112.93 kg

DRUGS (6)
  1. BACTRIM [Concomitant]
     Active Substance: SULFAMETHOXAZOLE\TRIMETHOPRIM
     Dosage: UNK
  2. ANOTHER ANTIBIOTIC FOR MRSA (UNSPECIFIED) [Concomitant]
     Dosage: UNK
  3. LOTS OF OTHER MEDICATIONS (UNSPECIFIED) [Concomitant]
  4. REGRANEX [Suspect]
     Active Substance: BECAPLERMIN
     Indication: WOUND
     Dosage: UNK
     Route: 061
     Dates: start: 20170425, end: 20170517
  5. HIGH BLOOD PRESSURE MEDICATION (UNSPECIFIED) [Concomitant]
  6. ANTIDEPRESSANTS (UNSPECIFIED) [Concomitant]

REACTIONS (3)
  - Osteomyelitis [Unknown]
  - Bone operation [Unknown]
  - Gangrene [Unknown]

NARRATIVE: CASE EVENT DATE: 2017
